FAERS Safety Report 17956293 (Version 4)
Quarter: 2020Q3

REPORT INFORMATION
  Report Type: Spontaneous
  Country: BG (occurrence: BG)
  Receive Date: 20200629
  Receipt Date: 20200826
  Transmission Date: 20201103
  Serious: Yes (Other)
  Sender: FDA-Public Use
  Company Number: BG-BRISTOL-MYERS SQUIBB COMPANY-BMS-2020-049422

PATIENT
  Age: 45 Year
  Sex: Male

DRUGS (4)
  1. ELIQUIS [Suspect]
     Active Substance: APIXABAN
     Indication: DEEP VEIN THROMBOSIS
     Dosage: 10 MILLIGRAM, BID
     Route: 048
     Dates: start: 20200608, end: 20200614
  2. ELIQUIS [Suspect]
     Active Substance: APIXABAN
     Dosage: 5 MILLIGRAM, BID
     Route: 048
     Dates: start: 20200615
  3. AFLAMIL [Suspect]
     Active Substance: ACECLOFENAC
     Indication: PAIN IN EXTREMITY
     Dosage: 100 MILLIGRAM, BID
     Route: 048
     Dates: start: 20200611, end: 20200615
  4. DETRALEX [Suspect]
     Active Substance: DIOSMIN\HESPERIDIN
     Indication: PAIN IN EXTREMITY
     Dosage: 500 MILLIGRAM, BID
     Route: 048
     Dates: start: 20200608, end: 20200713

REACTIONS (1)
  - Angioedema [Recovered/Resolved]

NARRATIVE: CASE EVENT DATE: 20200612
